FAERS Safety Report 6693847-2 (Version None)
Quarter: 2010Q2

REPORT INFORMATION
  Report Type: 
  Country: None (occurrence: None)
  Receive Date: 20100423
  Receipt Date: 20100409
  Transmission Date: 20101027
  Serious: Yes (Death)
  Sender: FDA-Public Use
  Company Number: PHHY2010MX11661

PATIENT
  Age: 79 Year
  Sex: Female

DRUGS (3)
  1. ACLASTA [Suspect]
     Dosage: UNK
     Dates: start: 20080201
  2. ACLASTA [Suspect]
     Dosage: UNK
     Dates: start: 20090301
  3. ACLASTA [Suspect]
     Dosage: UNK
     Dates: start: 20100325

REACTIONS (1)
  - DEATH [None]
